FAERS Safety Report 18727878 (Version 2)
Quarter: 2021Q1

REPORT INFORMATION
  Report Type: Spontaneous
  Country: IE (occurrence: IE)
  Receive Date: 20210112
  Receipt Date: 20210122
  Transmission Date: 20210419
  Serious: Yes (Other)
  Sender: FDA-Public Use
  Company Number: IE-ALLERGAN-2100721US

PATIENT
  Sex: Female

DRUGS (1)
  1. OXYBUTYNIN PCH ? BP [Suspect]
     Active Substance: OXYBUTYNIN
     Indication: HYPERTONIC BLADDER
     Dosage: ONE PATCH THREE TIMES WEEK
     Route: 062
     Dates: start: 20200525, end: 20201209

REACTIONS (7)
  - Urticaria [Recovered/Resolved]
  - Erythema [Recovered/Resolved]
  - Contusion [Recovered/Resolved]
  - Vasculitic rash [Recovered/Resolved]
  - Pruritus [Recovered/Resolved]
  - Inappropriate schedule of product administration [Unknown]
  - Off label use [Unknown]
